FAERS Safety Report 4964983-3 (Version None)
Quarter: 2006Q2

REPORT INFORMATION
  Report Type: 
  Country: None (occurrence: None)
  Receive Date: 20060403
  Receipt Date: 20060317
  Transmission Date: 20061013
  Serious: Yes (Death, Other)
  Sender: FDA-Public Use
  Company Number: 2006JP000394

PATIENT
  Age: 46 Year
  Sex: Male
  Weight: 65 kg

DRUGS (7)
  1. PROGRAF [Suspect]
     Indication: BONE MARROW TRANSPLANT
     Dosage: 0.75 MG, UID/QD, IV NOS
     Route: 042
     Dates: start: 20011120, end: 20020417
  2. METHOTREXATE [Concomitant]
  3. CELLCEPT [Concomitant]
  4. METHYLPREDNISOLONE [Concomitant]
  5. CYCLOPHOSPHAMIDE [Concomitant]
  6. DENOSINE   TANABE (GANCICLOVIR) INJECTION [Concomitant]
  7. PREDNISOLONE [Concomitant]

REACTIONS (3)
  - GRAFT VERSUS HOST DISEASE [None]
  - PNEUMONIA CYTOMEGALOVIRAL [None]
  - PSEUDOMONAL SEPSIS [None]
